FAERS Safety Report 8890878 (Version 9)
Quarter: 2014Q1

REPORT INFORMATION
  Report Type: Report from Study
  Country: US (occurrence: US)
  Receive Date: 20121107
  Receipt Date: 20140114
  Transmission Date: 20141002
  Serious: Yes (Other)
  Sender: FDA-Public Use
  Company Number: US-ROCHE-1148944

PATIENT
  Age: 73 Year
  Sex: Female
  Weight: 71.9 kg

DRUGS (9)
  1. TOCILIZUMAB [Suspect]
     Indication: RHEUMATOID ARTHRITIS
     Dosage: LAST DOSE PRIOR TO SAE 29 AUG 2012, MOST RECENT DOSE 162 MG
     Route: 058
     Dates: start: 20111208
  2. BLINDED TOCILIZUMAB [Suspect]
     Indication: RHEUMATOID ARTHRITIS
     Dosage: LAST DOSE PRIOR TO SAE : 24 NOV 2011.
     Route: 058
     Dates: start: 20110623, end: 20111124
  3. FOLIC ACID [Concomitant]
     Indication: RHEUMATOID ARTHRITIS
     Route: 048
     Dates: start: 200911
  4. METHOTREXATE [Concomitant]
     Indication: RHEUMATOID ARTHRITIS
     Route: 048
     Dates: start: 200911
  5. HYDROXYCHLOROQUINE [Concomitant]
     Indication: RHEUMATOID ARTHRITIS
     Route: 048
     Dates: start: 200911
  6. TRAZODONE [Concomitant]
     Route: 048
     Dates: start: 2006
  7. SULFASALAZINE [Concomitant]
     Indication: RHEUMATOID ARTHRITIS
     Route: 048
     Dates: start: 201001
  8. HYDROCODONE BITARTRATE [Concomitant]
     Indication: RHEUMATOID ARTHRITIS
     Route: 048
     Dates: start: 201008
  9. ONDANSETRON [Concomitant]
     Route: 048
     Dates: start: 20120809

REACTIONS (1)
  - Pancytopenia [Recovered/Resolved]
